FAERS Safety Report 4720677-0 (Version None)
Quarter: 2005Q3

REPORT INFORMATION
  Report Type: 
  Country: None (occurrence: None)
  Receive Date: 20050719
  Receipt Date: 20050711
  Transmission Date: 20060218
  Serious: Yes (Hospitalization)
  Sender: FDA-Public Use
  Company Number: 200511381BWH

PATIENT

DRUGS (1)
  1. TRASYLOL [Suspect]
     Dosage: INTRAVENOUS
     Route: 042

REACTIONS (1)
  - MEDICAL DEVICE COMPLICATION [None]
